FAERS Safety Report 7426718-4 (Version None)
Quarter: 2011Q2

REPORT INFORMATION
  Report Type: 
  Country: None (occurrence: None)
  Receive Date: 20110420
  Receipt Date: 20110418
  Transmission Date: 20111010
  Serious: Yes (Hospitalization)
  Sender: FDA-Public Use
  Company Number: US-TEVA-277090USA

PATIENT
  Age: 46 Year
  Sex: Male

DRUGS (2)
  1. WARFARIN SODIUM [Suspect]
  2. SILDENAFIL CITRATE [Suspect]
     Indication: PARAESTHESIA

REACTIONS (1)
  - FRACTURE OF PENIS [None]
